FAERS Safety Report 6434695-8 (Version None)
Quarter: 2009Q4

REPORT INFORMATION
  Report Type: 
  Country: None (occurrence: None)
  Receive Date: 20091110
  Receipt Date: 20091102
  Transmission Date: 20100525
  Serious: Yes (Life-Threatening, Hospitalization)
  Sender: FDA-Public Use
  Company Number: GB-AMGEN-UK371257

PATIENT
  Sex: Male
  Weight: 94.6 kg

DRUGS (2)
  1. PANITUMUMAB [Suspect]
     Indication: COLORECTAL CANCER
     Route: 042
     Dates: start: 20090903
  2. IRINOTECAN HCL [Suspect]
     Route: 042
     Dates: start: 20090903

REACTIONS (1)
  - INTESTINAL PERFORATION [None]
